FAERS Safety Report 26059493 (Version 1)
Quarter: 2025Q4

REPORT INFORMATION
  Report Type: Spontaneous
  Country: EU (occurrence: EU)
  Receive Date: 20251118
  Receipt Date: 20251118
  Transmission Date: 20260117
  Serious: Yes (Life-Threatening, Other)
  Sender: DR REDDYS
  Company Number: None

PATIENT
  Age: 60 Year
  Sex: Male

DRUGS (11)
  1. RITUXIMAB [Suspect]
     Active Substance: RITUXIMAB
     Indication: B-cell type acute leukaemia
     Dosage: INDUCTION PHASE I: D6; INDUCTION PHASE II: D20; CONSOLIDATION CHEMOTHERAPY: D1
  2. CYCLOPHOSPHAMIDE [Suspect]
     Active Substance: CYCLOPHOSPHAMIDE
     Indication: B-cell type acute leukaemia
     Dosage: INDUCTION PHASE II: D21, 35
  3. DEXAMETHASONE [Suspect]
     Active Substance: DEXAMETHASONE
     Indication: B-cell type acute leukaemia
     Dosage: INDUCTION PHASE I: D7, 8, 14-17, ; INDUCTION PHASE II: D7, 8, 14-17
  4. DEXAMETHASONE [Suspect]
     Active Substance: DEXAMETHASONE
     Dosage: INDUCTION PHASE I: D13; INDUCTION PHASE II: D21, 28, 35
     Route: 029
  5. METHOTREXATE [Suspect]
     Active Substance: METHOTREXATE
     Indication: B-cell type acute leukaemia
     Dosage: INDUCTION PHASE I: D13; INDUCTION PHASE II: D21, 28, 35
     Route: 029
  6. METHOTREXATE [Suspect]
     Active Substance: METHOTREXATE
     Dosage: CONSOLIDATION CHEMOTHERAPY: HDMTX D2, 16
  7. VINCRISTINE [Suspect]
     Active Substance: VINCRISTINE
     Indication: B-cell type acute leukaemia
     Dosage: INDUCTION PHASE I: D7, 14
  8. IDARUBICIN [Suspect]
     Active Substance: IDARUBICIN
     Indication: B-cell type acute leukaemia
     Dosage: INDUCTION PHASE I: D7, 8, 14, 15
  9. CYTARABINE [Suspect]
     Active Substance: CYTARABINE
     Indication: B-cell type acute leukaemia
     Dosage: INDUCTION PHASE I: D13; INDUCTION PHASE II: D21, 28, 35
     Route: 029
  10. CYTARABINE [Suspect]
     Active Substance: CYTARABINE
     Dosage: INDUCTION PHASE II: D22-25, 29-32
  11. PEG/L-ASPARAGINASE [Suspect]
     Active Substance: PEGASPARGASE
     Indication: B-cell type acute leukaemia
     Dosage: CONSOLIDATION CHEMOTHERAPY: D3, 17

REACTIONS (4)
  - Thrombocytopenia [Unknown]
  - Anaemia [Unknown]
  - Subdural haematoma [Unknown]
  - Seizure [Unknown]
